FAERS Safety Report 9404321 (Version 1)
Quarter: 2013Q3

REPORT INFORMATION
  Report Type: Spontaneous
  Country: US (occurrence: None)
  Receive Date: 20130716
  Receipt Date: 20130716
  Transmission Date: 20140515
  Serious: No
  Sender: FDA-Public Use
  Company Number: None

PATIENT
  Age: 65 Year
  Sex: 0

DRUGS (1)
  1. STIVARGA 40MG BAYER [Suspect]
     Dosage: 160MG QDX21D PO
     Route: 048

REACTIONS (1)
  - Drug ineffective [None]
